FAERS Safety Report 7473663-4 (Version None)
Quarter: 2011Q2

REPORT INFORMATION
  Report Type: 
  Country: None (occurrence: None)
  Receive Date: 20110511
  Receipt Date: 20110420
  Transmission Date: 20111010
  Serious: Yes (Hospitalization, Other)
  Sender: FDA-Public Use
  Company Number: US-BAYER-2011-021167

PATIENT
  Age: 25 Year
  Sex: Female
  Weight: 49.887 kg

DRUGS (12)
  1. YAZ [Suspect]
     Indication: PREMENSTRUAL SYNDROME
  2. CIPRO [Concomitant]
  3. MORPHINE [Concomitant]
  4. YASMIN [Suspect]
     Indication: ENDOMETRIOSIS
     Dosage: UNK
     Dates: start: 20040101, end: 20060101
  5. YASMIN [Suspect]
     Indication: DYSMENORRHOEA
  6. YAZ [Suspect]
     Indication: DYSMENORRHOEA
  7. IBUPROFEN [Concomitant]
     Indication: PAIN
  8. ZOFRAN [Concomitant]
  9. FLAGYL [Concomitant]
  10. REGLAN [Concomitant]
  11. YASMIN [Suspect]
     Indication: PREMENSTRUAL SYNDROME
  12. YAZ [Suspect]
     Indication: ENDOMETRIOSIS
     Dosage: UNK
     Dates: start: 20060101, end: 20080101

REACTIONS (10)
  - CHOLELITHIASIS [None]
  - PAIN [None]
  - LOSS OF CONSCIOUSNESS [None]
  - VOMITING [None]
  - ABDOMINAL DISCOMFORT [None]
  - DIARRHOEA [None]
  - DEPRESSION [None]
  - FEAR OF DEATH [None]
  - NERVOUSNESS [None]
  - EMOTIONAL DISTRESS [None]
